FAERS Safety Report 8816076 (Version 2)
Quarter: 2012Q4

REPORT INFORMATION
  Report Type: 
  Country: US (occurrence: US)
  Receive Date: 20120928
  Receipt Date: 20121106
  Transmission Date: 20130627
  Serious: Yes (Other)
  Sender: FDA-Public Use
  Company Number: US-PFIZER INC-2012240186

PATIENT
  Age: 26 Year
  Sex: Female
  Weight: 112 kg

DRUGS (3)
  1. LYRICA [Suspect]
     Indication: FIBROMYALGIA
     Dosage: UNK
  2. LYRICA [Suspect]
     Dosage: 150 mg, 2x/day
  3. CYMBALTA [Concomitant]
     Indication: ARTHRITIS
     Dosage: 60 mg, daily

REACTIONS (7)
  - Crohn^s disease [Unknown]
  - Cardiac disorder [Unknown]
  - Gastric polyps [Unknown]
  - Large intestine polyp [Unknown]
  - Gastrointestinal disorder [Not Recovered/Not Resolved]
  - Gastric disorder [Not Recovered/Not Resolved]
  - Insomnia [Recovered/Resolved]
